FAERS Safety Report 8185677-X (Version None)
Quarter: 2012Q1

REPORT INFORMATION
  Report Type: 
  Country: None (occurrence: None)
  Receive Date: 20120305
  Receipt Date: 20120229
  Transmission Date: 20120608
  Serious: Yes (Other)
  Sender: FDA-Public Use
  Company Number: US-BAYER-201038598NA

PATIENT
  Age: 54 Year
  Sex: Male

DRUGS (5)
  1. MULTIHANCE [Suspect]
     Indication: NUCLEAR MAGNETIC RESONANCE IMAGING
  2. PROHANCE [Suspect]
     Indication: NUCLEAR MAGNETIC RESONANCE IMAGING
  3. MAGNEVIST [Suspect]
     Indication: NUCLEAR MAGNETIC RESONANCE IMAGING
  4. OPTIMARK [Suspect]
     Indication: NUCLEAR MAGNETIC RESONANCE IMAGING
  5. OMNISCAN [Suspect]
     Indication: NUCLEAR MAGNETIC RESONANCE IMAGING

REACTIONS (8)
  - SKIN SWELLING [None]
  - GENERAL PHYSICAL HEALTH DETERIORATION [None]
  - SKIN TIGHTNESS [None]
  - PAIN [None]
  - SKIN DISCOLOURATION [None]
  - NEPHROGENIC SYSTEMIC FIBROSIS [None]
  - DEFORMITY [None]
  - SKIN HYPERTROPHY [None]
